FAERS Safety Report 11364189 (Version 1)
Quarter: 2015Q3

REPORT INFORMATION
  Report Type: Report from Study
  Country: BR (occurrence: BR)
  Receive Date: 20150811
  Receipt Date: 20150811
  Transmission Date: 20151125
  Serious: Yes (Other)
  Sender: FDA-Public Use
  Company Number: PHHY2015BR093752

PATIENT
  Sex: Female
  Weight: 79 kg

DRUGS (1)
  1. ACLASTA [Suspect]
     Active Substance: ZOLEDRONIC ACID
     Indication: OSTEOPOROSIS
     Dosage: 5 MG, ONCE A YEAR
     Route: 065
     Dates: start: 2014

REACTIONS (14)
  - Stress [Unknown]
  - Blood pressure increased [Unknown]
  - Spinal disorder [Unknown]
  - Diabetes mellitus [Unknown]
  - Intervertebral disc protrusion [Unknown]
  - Fluid retention [Unknown]
  - Bone pain [Unknown]
  - Joint swelling [Unknown]
  - Pain in extremity [Unknown]
  - Condition aggravated [Unknown]
  - Osteoarthritis [Unknown]
  - Fall [Unknown]
  - Back disorder [Unknown]
  - Osteoporosis [Unknown]
